FAERS Safety Report 4808983-2 (Version None)
Quarter: 2005Q4

REPORT INFORMATION
  Report Type: 
  Country: None (occurrence: None)
  Receive Date: 20051021
  Receipt Date: 20030331
  Transmission Date: 20060501
  Serious: Yes (Other)
  Sender: FDA-Public Use
  Company Number: GBS030412920

PATIENT
  Age: 35 Year
  Sex: Male

DRUGS (4)
  1. ZYPREXA [Suspect]
     Indication: MAJOR DEPRESSION
     Dosage: 15 MG
     Route: 048
     Dates: start: 20010228, end: 20021101
  2. CITALOPRAM HYDROBROMIDE [Concomitant]
  3. ZOPICLONE [Concomitant]
  4. FLUPENTIXOL [Concomitant]

REACTIONS (1)
  - NEUTROPENIA [None]
